FAERS Safety Report 10511586 (Version 2)
Quarter: 2014Q4

REPORT INFORMATION
  Report Type: Spontaneous
  Country: KR (occurrence: KR)
  Receive Date: 20141010
  Receipt Date: 20141028
  Transmission Date: 20150528
  Serious: Yes (Other)
  Sender: FDA-Public Use
  Company Number: KR-ELI_LILLY_AND_COMPANY-KR201410002513

PATIENT

DRUGS (6)
  1. GEMCITABINE HYDROCHLORIDE. [Suspect]
     Active Substance: GEMCITABINE HYDROCHLORIDE
     Indication: COLORECTAL CANCER METASTATIC
     Dosage: 800 MG/M2, CYCLICAL
     Route: 042
  2. UFT [Suspect]
     Active Substance: TEGAFUR\URACIL
     Indication: COLORECTAL CANCER METASTATIC
     Dosage: 200 MG/M2, QD
     Route: 048
  3. GEMCITABINE HYDROCHLORIDE. [Suspect]
     Active Substance: GEMCITABINE HYDROCHLORIDE
     Dosage: 650 MG/M2, CYCLICAL
     Route: 042
  4. UFT [Suspect]
     Active Substance: TEGAFUR\URACIL
     Dosage: 160 MG/M2, QD
     Route: 048
  5. UFT [Suspect]
     Active Substance: TEGAFUR\URACIL
     Dosage: 120 MG/M2, QD
     Route: 048
  6. GEMCITABINE HYDROCHLORIDE. [Suspect]
     Active Substance: GEMCITABINE HYDROCHLORIDE
     Dosage: 500 MG/M2, CYCLICAL
     Route: 042

REACTIONS (1)
  - Dizziness [Unknown]
